FAERS Safety Report 9723004 (Version 3)
Quarter: 2014Q4

REPORT INFORMATION
  Report Type: Spontaneous
  Country: US (occurrence: None)
  Receive Date: 20131126
  Receipt Date: 20141124
  Transmission Date: 20150529
  Serious: Yes (Hospitalization, Other)
  Sender: FDA-Public Use
  Company Number: 2013-US-003483

PATIENT
  Age: 68 Year
  Sex: Female

DRUGS (4)
  1. PROZAC [Concomitant]
     Active Substance: FLUOXETINE HYDROCHLORIDE
  2. VITAMINS (VITAMINS) [Concomitant]
  3. PROSOM [Concomitant]
     Active Substance: ESTAZOLAM
  4. XYREM [Suspect]
     Active Substance: SODIUM OXYBATE
     Indication: PRODUCT USED FOR UNKNOWN INDICATION
     Dosage: 2.25 G, BID, ORAL
     Route: 048
     Dates: start: 200409

REACTIONS (4)
  - Wrist fracture [None]
  - Balance disorder [None]
  - Knee arthroplasty [None]
  - Fall [None]

NARRATIVE: CASE EVENT DATE: 2008
